FAERS Safety Report 9848332 (Version 1)
Quarter: 2014Q1

REPORT INFORMATION
  Report Type: Spontaneous
  Country: CA (occurrence: None)
  Receive Date: 20140123
  Receipt Date: 20140123
  Transmission Date: 20141002
  Serious: No
  Sender: FDA-Public Use
  Company Number: None

PATIENT
  Sex: 0

DRUGS (1)
  1. SPIRIVA [Suspect]
     Dosage: LOT # 5516003

REACTIONS (4)
  - Dyspnoea [None]
  - Product packaging quantity issue [None]
  - Product quality issue [None]
  - Incorrect dose administered [None]
